FAERS Safety Report 25315892 (Version 3)
Quarter: 2025Q4

REPORT INFORMATION
  Report Type: Report from Study
  Country: US (occurrence: None)
  Receive Date: 20250515
  Receipt Date: 20251215
  Transmission Date: 20260119
  Serious: Yes (Other)
  Sender: UCB
  Company Number: US-UCBSA-2025027255

PATIENT
  Age: 9 Year
  Weight: 29.5 kg

DRUGS (2)
  1. FENFLURAMINE [Suspect]
     Active Substance: FENFLURAMINE
     Indication: Seizure
     Dosage: 11.MG/DAY
  2. FENFLURAMINE [Suspect]
     Active Substance: FENFLURAMINE
     Dosage: (TOTAL:11.4 MILLIGRAM PER DAY)

REACTIONS (1)
  - Aortic dilatation [Not Recovered/Not Resolved]
